FAERS Safety Report 20453077 (Version 1)
Quarter: 2022Q1

REPORT INFORMATION
  Report Type: Spontaneous
  Country: DE (occurrence: DE)
  Receive Date: 20220210
  Receipt Date: 20220210
  Transmission Date: 20220423
  Serious: Yes (Other)
  Sender: FDA-Public Use
  Company Number: DE-NOVARTISPH-NVSC2022DE027809

PATIENT
  Age: 74 Year
  Sex: Male

DRUGS (6)
  1. PACLITAXEL [Suspect]
     Active Substance: PACLITAXEL
     Indication: Lung adenocarcinoma
     Dosage: 50MG/M2 WEEKLY
     Route: 065
     Dates: start: 202012, end: 202101
  2. CISPLATIN [Suspect]
     Active Substance: CISPLATIN
     Indication: Non-small cell lung cancer
     Dosage: 75MG/M2 DAY1 REP. DAY 22 A TOTAL OF 2X
     Route: 065
     Dates: start: 202110
  3. CARBOPLATIN [Suspect]
     Active Substance: CARBOPLATIN
     Indication: Lung adenocarcinoma
     Dosage: AUC2
     Route: 065
     Dates: start: 202012, end: 202101
  4. PEMETREXED DISODIUM [Suspect]
     Active Substance: PEMETREXED DISODIUM
     Indication: Non-small cell lung cancer
     Dosage: 500MG/M2 REP. DAY 22 A TOTAL OF 2X
     Route: 065
     Dates: start: 202110
  5. YERVOY [Suspect]
     Active Substance: IPILIMUMAB
     Indication: Non-small cell lung cancer
     Dosage: 1MG/KG DAY REP. DAY 43
     Route: 065
     Dates: start: 202110
  6. OPDIVO [Suspect]
     Active Substance: NIVOLUMAB
     Indication: Non-small cell lung cancer
     Dosage: 360MG ABSOLUTE DAY 1 AND 22 REP. DAY 43
     Route: 065
     Dates: start: 202110

REACTIONS (3)
  - Leukopenia [Unknown]
  - Alopecia [Unknown]
  - Nausea [Unknown]
